FAERS Safety Report 8804298 (Version 1)
Quarter: 2012Q4

REPORT INFORMATION
  Report Type: 
  Country: US (occurrence: US)
  Receive Date: 20120924
  Receipt Date: 20120924
  Transmission Date: 20130627
  Serious: Yes (Other)
  Sender: FDA-Public Use
  Company Number: US-SANOFI-AVENTIS-2012SA067249

PATIENT
  Sex: Male

DRUGS (4)
  1. LANTUS SOLOSTAR [Suspect]
     Indication: DIABETES
     Dosage: Dose:15 unit(s)
     Route: 058
     Dates: start: 2011
  2. SOLOSTAR [Suspect]
     Indication: DIABETES
  3. APIDRA SOLOSTAR [Suspect]
     Indication: DIABETES
     Dosage: Dose:10 unit(s)
     Route: 058
     Dates: start: 2011
  4. SOLOSTAR [Suspect]
     Indication: DIABETES
     Dates: start: 2011

REACTIONS (3)
  - Blindness [Not Recovered/Not Resolved]
  - Localised infection [Not Recovered/Not Resolved]
  - Hypoaesthesia [Not Recovered/Not Resolved]
